FAERS Safety Report 13444663 (Version 2)
Quarter: 2017Q2

REPORT INFORMATION
  Report Type: Spontaneous
  Country: NL (occurrence: NL)
  Receive Date: 20170414
  Receipt Date: 20170531
  Transmission Date: 20170830
  Serious: Yes (Other)
  Sender: FDA-Public Use
  Company Number: NL-AMGEN-NLDSP2017056511

PATIENT
  Age: 71 Year
  Sex: Female
  Weight: 70 kg

DRUGS (6)
  1. CARBASALATE CALCIUM [Concomitant]
     Active Substance: CARBASPIRIN
     Dosage: 100 MG, UNK
  2. BRILIQUE [Concomitant]
     Active Substance: TICAGRELOR
     Dosage: 90 MG, BID
     Route: 048
  3. REPATHA [Suspect]
     Active Substance: EVOLOCUMAB
     Indication: HYPERCHOLESTEROLAEMIA
     Dosage: 140 MG/ML, Q2WK
     Route: 065
     Dates: start: 20170101
  4. EZETROL [Concomitant]
     Active Substance: EZETIMIBE
     Dosage: 10 MG, DF
     Route: 048
  5. VALSARTAN/HCT [Concomitant]
     Active Substance: HYDROCHLOROTHIAZIDE\VALSARTAN
     Dosage: 160/12.5 MG, UNK
     Route: 048
  6. METOPROLOL. [Concomitant]
     Active Substance: METOPROLOL
     Dosage: 25 MG, UNK
     Route: 048

REACTIONS (2)
  - Blood glucose increased [Recovered/Resolved]
  - Renal impairment [Unknown]

NARRATIVE: CASE EVENT DATE: 201703
